FAERS Safety Report 16154524 (Version 1)
Quarter: 2019Q2

REPORT INFORMATION
  Report Type: Spontaneous
  Country: US (occurrence: US)
  Receive Date: 20190403
  Receipt Date: 20190403
  Transmission Date: 20190711
  Serious: Yes (Other)
  Sender: FDA-Public Use
  Company Number: US-ASTRAZENECA-2019SE47911

PATIENT
  Age: 19791 Day

DRUGS (8)
  1. NEXIUM [Suspect]
     Active Substance: ESOMEPRAZOLE MAGNESIUM
     Route: 048
     Dates: start: 20120727
  2. LEVOTHYROXINE. [Concomitant]
     Active Substance: LEVOTHYROXINE
  3. LISINOPRIL. [Concomitant]
     Active Substance: LISINOPRIL
  4. LOSARTAN/HCTZ [Concomitant]
     Active Substance: HYDROCHLOROTHIAZIDE\LOSARTAN
  5. NIFEDIPINE. [Concomitant]
     Active Substance: NIFEDIPINE
  6. METOPROLOL. [Concomitant]
     Active Substance: METOPROLOL
  7. ZETIA [Concomitant]
     Active Substance: EZETIMIBE
  8. TRILIPIX [Concomitant]
     Active Substance: FENOFIBRIC ACID

REACTIONS (1)
  - Chronic kidney disease [Unknown]

NARRATIVE: CASE EVENT DATE: 20160107
